FAERS Safety Report 10221610 (Version 1)
Quarter: 2014Q2

REPORT INFORMATION
  Report Type: Spontaneous
  Country: US (occurrence: None)
  Receive Date: 20140605
  Receipt Date: 20140605
  Transmission Date: 20141212
  Serious: Yes (Hospitalization)
  Sender: FDA-Public Use
  Company Number: None

PATIENT
  Age: 58 Year
  Sex: Male
  Weight: 99.1 kg

DRUGS (3)
  1. SOVALDI [Suspect]
     Indication: HEPATITIS C
     Route: 048
     Dates: start: 20140202, end: 20140422
  2. RIBAVIRIN [Suspect]
     Route: 048
  3. PEGASYS [Concomitant]

REACTIONS (8)
  - Jaundice [None]
  - Asthenia [None]
  - Confusional state [None]
  - Pancytopenia [None]
  - Lipase increased [None]
  - Blood creatinine increased [None]
  - Cholelithiasis [None]
  - Cognitive disorder [None]
